FAERS Safety Report 5375492-4 (Version None)
Quarter: 2007Q2

REPORT INFORMATION
  Report Type: 
  Country: None (occurrence: None)
  Receive Date: 20070629
  Receipt Date: 20070619
  Transmission Date: 20071010
  Serious: Yes (Other)
  Sender: FDA-Public Use
  Company Number: US-SHR-US-2006-029048

PATIENT
  Age: 22 Year
  Sex: Female
  Weight: 55 kg

DRUGS (3)
  1. MAGNEVIST [Suspect]
     Dosage: 11 ML, 1 DOSE
     Route: 042
     Dates: start: 20060928, end: 20060928
  2. VALPROATE SODIUM [Concomitant]
     Dosage: UNK, UNK
     Dates: end: 20060925
  3. TOPAMAX [Concomitant]
     Dates: start: 20060925

REACTIONS (9)
  - ANAPHYLACTOID REACTION [None]
  - BLOOD PRESSURE DIASTOLIC INCREASED [None]
  - CONFUSIONAL STATE [None]
  - DISORIENTATION [None]
  - EYE SWELLING [None]
  - HEART RATE INCREASED [None]
  - NAUSEA [None]
  - OXYGEN SATURATION DECREASED [None]
  - URTICARIA [None]
